FAERS Safety Report 23771041 (Version 1)
Quarter: 2024Q2

REPORT INFORMATION
  Report Type: Spontaneous
  Country: US (occurrence: US)
  Receive Date: 20240423
  Receipt Date: 20240423
  Transmission Date: 20240716
  Serious: No
  Sender: FDA-Public Use
  Company Number: US-GLENMARK PHARMACEUTICALS-2024GMK088908

PATIENT

DRUGS (1)
  1. ESZOPICLONE [Suspect]
     Active Substance: ESZOPICLONE
     Indication: Insomnia
     Dosage: 3 MILLIGRAM, HS (AT BEDTIME)
     Route: 048
     Dates: start: 20240117, end: 20240120

REACTIONS (2)
  - Drug ineffective [Unknown]
  - Product substitution issue [Unknown]

NARRATIVE: CASE EVENT DATE: 20240117
